FAERS Safety Report 11689028 (Version 2)
Quarter: 2015Q4

REPORT INFORMATION
  Report Type: Report from Study
  Country: AR (occurrence: AR)
  Receive Date: 20151102
  Receipt Date: 20151116
  Transmission Date: 20160304
  Serious: Yes (Other)
  Sender: FDA-Public Use
  Company Number: AR-ROCHE-1653491

PATIENT
  Age: 50 Year
  Sex: Female

DRUGS (1)
  1. XOLAIR [Suspect]
     Active Substance: OMALIZUMAB
     Indication: ASTHMA
     Dosage: FOUR APPLICATIONS MONTHLY, RESPIRATORY
     Route: 055
     Dates: end: 20150928

REACTIONS (13)
  - Fatigue [Recovering/Resolving]
  - Blood cortisol decreased [Unknown]
  - Somnolence [Recovering/Resolving]
  - Bronchospasm [Unknown]
  - Arthralgia [Recovering/Resolving]
  - Adrenal insufficiency [Unknown]
  - Oedema peripheral [Recovering/Resolving]
  - Muscle contracture [Recovering/Resolving]
  - Face oedema [Recovering/Resolving]
  - Haematoma [Unknown]
  - Laryngeal oedema [Recovering/Resolving]
  - Aphonia [Unknown]
  - Myalgia [Unknown]

NARRATIVE: CASE EVENT DATE: 20150928
